FAERS Safety Report 8775834 (Version 2)
Quarter: 2012Q4

REPORT INFORMATION
  Report Type: 
  Country: US (occurrence: US)
  Receive Date: 20120910
  Receipt Date: 20121211
  Transmission Date: 20130627
  Serious: Yes (Hospitalization, Other)
  Sender: FDA-Public Use
  Company Number: US-PFIZER INC-2012221409

PATIENT
  Age: 56 Year
  Sex: Male
  Weight: 74.83 kg

DRUGS (4)
  1. GEODON [Suspect]
     Indication: NERVOUS BREAKDOWN
     Dosage: 80 mg, 2x/day
  2. GEODON [Suspect]
     Indication: HALLUCINATION, AUDITORY
  3. DEPAKOTE [Suspect]
     Indication: NERVOUS BREAKDOWN
     Dosage: UNK
  4. DEPAKOTE [Suspect]
     Indication: HALLUCINATION, AUDITORY

REACTIONS (5)
  - Mental disorder [Unknown]
  - Hallucination, auditory [Unknown]
  - Type 2 diabetes mellitus [Unknown]
  - Blood glucose increased [Unknown]
  - Drug intolerance [Unknown]
